FAERS Safety Report 8972821 (Version 2)
Quarter: 2012Q4

REPORT INFORMATION
  Report Type: 
  Country: US (occurrence: US)
  Receive Date: 20121219
  Receipt Date: 20121231
  Transmission Date: 20130627
  Serious: Yes (Hospitalization)
  Sender: FDA-Public Use
  Company Number: US-BIOGENIDEC-2012BI060073

PATIENT
  Age: 24 Year
  Sex: Male

DRUGS (4)
  1. TYSABRI [Suspect]
     Indication: MULTIPLE SCLEROSIS
     Route: 042
     Dates: start: 20080623
  2. DILANTIN [Concomitant]
     Route: 048
  3. DILANTIN [Concomitant]
     Route: 048
  4. KEPPRA [Concomitant]
     Route: 048

REACTIONS (2)
  - Convulsion [Not Recovered/Not Resolved]
  - Infection [Not Recovered/Not Resolved]
